FAERS Safety Report 20660200 (Version 1)
Quarter: 2022Q1

REPORT INFORMATION
  Report Type: Report from Study
  Country: US (occurrence: None)
  Receive Date: 20220331
  Receipt Date: 20220331
  Transmission Date: 20220423
  Serious: Yes (Hospitalization)
  Sender: FDA-Public Use
  Company Number: 2022A126940

PATIENT
  Sex: Male
  Weight: 117.9 kg

DRUGS (6)
  1. TAGRISSO [Suspect]
     Active Substance: OSIMERTINIB
     Indication: Lung neoplasm malignant
     Route: 048
     Dates: start: 202203
  2. LOVENOX [Concomitant]
     Active Substance: ENOXAPARIN SODIUM
  3. HEPARIN SODIUM [Concomitant]
     Active Substance: HEPARIN SODIUM
  4. FISH OIL [Concomitant]
     Active Substance: FISH OIL
  5. HERBALS\TURMERIC [Concomitant]
     Active Substance: HERBALS\TURMERIC
  6. DIETARY SUPPLEMENT [Concomitant]
     Active Substance: DIETARY SUPPLEMENT

REACTIONS (2)
  - Thrombosis [Unknown]
  - Erythema [Unknown]
